FAERS Safety Report 18904901 (Version 1)
Quarter: 2021Q1

REPORT INFORMATION
  Report Type: Spontaneous
  Country: AR (occurrence: AR)
  Receive Date: 20210217
  Receipt Date: 20210217
  Transmission Date: 20210420
  Serious: Yes (Other)
  Sender: FDA-Public Use
  Company Number: AR-BAYER-2021-063472

PATIENT
  Age: 53 Year
  Sex: Female

DRUGS (1)
  1. BETAFERON [Suspect]
     Active Substance: INTERFERON BETA-1B
     Indication: MULTIPLE SCLEROSIS
     Dosage: 1 ML, QOD
     Dates: start: 201210

REACTIONS (1)
  - Asymptomatic COVID-19 [Recovered/Resolved]

NARRATIVE: CASE EVENT DATE: 20210120
